FAERS Safety Report 7520405-X (Version None)
Quarter: 2011Q2

REPORT INFORMATION
  Report Type: 
  Country: None (occurrence: None)
  Receive Date: 20110602
  Receipt Date: 20110516
  Transmission Date: 20111010
  Serious: Yes (Other)
  Sender: FDA-Public Use
  Company Number: US-BAYER-201039175NA

PATIENT
  Age: 34 Year
  Sex: Female
  Weight: 120.18 kg

DRUGS (8)
  1. HYDROXYCHLOROQUINE SULFATE [Concomitant]
     Indication: CONNECTIVE TISSUE DISORDER
     Dosage: 600 MG, QD
     Route: 048
  2. YASMIN [Suspect]
     Indication: MENSTRUATION IRREGULAR
     Route: 048
  3. CARAFATE [Concomitant]
     Indication: GASTROOESOPHAGEAL REFLUX DISEASE
     Dosage: UNK UNK, QID
     Route: 048
  4. NEXIUM [Concomitant]
     Indication: GASTROOESOPHAGEAL REFLUX DISEASE
     Dosage: 40 MG, QD
     Route: 048
  5. MAXIMUM XP [Concomitant]
     Indication: PHENYLKETONURIA
     Route: 048
  6. YAZ [Suspect]
     Indication: MENSTRUATION IRREGULAR
     Dosage: UNK
     Dates: start: 20030101
  7. ULTRAM [Concomitant]
     Indication: CONNECTIVE TISSUE DISORDER
     Route: 048
  8. TYLENOL-500 [Concomitant]
     Indication: PAIN
     Dosage: UNK UNK, PRN

REACTIONS (6)
  - ABDOMINAL PAIN UPPER [None]
  - VOMITING [None]
  - CHOLELITHIASIS [None]
  - INSOMNIA [None]
  - APHAGIA [None]
  - HEPATOBILIARY SCAN ABNORMAL [None]
